FAERS Safety Report 18202065 (Version 1)
Quarter: 2020Q3

REPORT INFORMATION
  Report Type: Spontaneous
  Country: US (occurrence: US)
  Receive Date: 20200827
  Receipt Date: 20200827
  Transmission Date: 20201103
  Serious: No
  Sender: FDA-Public Use
  Company Number: US-DRREDDYS-USA/USA/20/0126332

PATIENT
  Age: 66 Year
  Sex: Male

DRUGS (1)
  1. LEVETIRACETAM. [Suspect]
     Active Substance: LEVETIRACETAM
     Indication: HOLMES TREMOR
     Route: 065

REACTIONS (2)
  - Holmes tremor [Recovered/Resolved]
  - Condition aggravated [Recovered/Resolved]
